FAERS Safety Report 21229348 (Version 1)
Quarter: 2022Q3

REPORT INFORMATION
  Report Type: Spontaneous
  Country: US (occurrence: US)
  Receive Date: 20220818
  Receipt Date: 20220818
  Transmission Date: 20221026
  Serious: Yes (Hospitalization, Other)
  Sender: FDA-Public Use
  Company Number: US-FreseniusKabi-FK202211447

PATIENT
  Age: 21 Year
  Sex: Male

DRUGS (4)
  1. DEXAMETHASONE [Suspect]
     Active Substance: DEXAMETHASONE
     Indication: Blastic plasmacytoid dendritic cell neoplasia
     Dosage: 2 CYCLES
  2. VINCRISTINE [Suspect]
     Active Substance: VINCRISTINE
     Indication: Blastic plasmacytoid dendritic cell neoplasia
     Dosage: 2 CYCLES
  3. CYCLOPHOSPHAMIDE [Suspect]
     Active Substance: CYCLOPHOSPHAMIDE
     Indication: Blastic plasmacytoid dendritic cell neoplasia
     Dosage: 2 CYCLES
  4. ADRIAMYCIN [Suspect]
     Active Substance: DOXORUBICIN HYDROCHLORIDE
     Indication: Blastic plasmacytoid dendritic cell neoplasia
     Dosage: 2 CYCLES

REACTIONS (2)
  - Neutropenic sepsis [Unknown]
  - Fournier^s gangrene [Unknown]
